FAERS Safety Report 10185289 (Version 1)
Quarter: 2014Q2

REPORT INFORMATION
  Report Type: Spontaneous
  Country: US (occurrence: US)
  Receive Date: 20140521
  Receipt Date: 20140521
  Transmission Date: 20141212
  Serious: No
  Sender: FDA-Public Use
  Company Number: US-PFIZER INC-2014136558

PATIENT
  Age: 60 Year
  Sex: Female

DRUGS (4)
  1. XALKORI [Suspect]
     Indication: NON-SMALL CELL LUNG CANCER
     Dosage: 250 MG, 2X/DAY
     Dates: start: 20140215
  2. XALKORI [Suspect]
     Dosage: 250 MG, DAILY
  3. XALKORI [Suspect]
     Dosage: 200 MG, 2X/DAY
  4. XALKORI [Suspect]
     Dosage: 200 MG, 1X/DAY

REACTIONS (8)
  - Nausea [Recovered/Resolved]
  - Vomiting [Recovered/Resolved]
  - Rash [Recovered/Resolved]
  - Palpitations [Recovered/Resolved]
  - Photopsia [Recovered/Resolved]
  - Joint swelling [Recovered/Resolved]
  - Liver function test abnormal [Recovered/Resolved]
  - Fatigue [Unknown]
